FAERS Safety Report 18539261 (Version 1)
Quarter: 2020Q4

REPORT INFORMATION
  Report Type: Spontaneous
  Country: US (occurrence: US)
  Receive Date: 20201124
  Receipt Date: 20201124
  Transmission Date: 20210114
  Serious: No
  Sender: FDA-Public Use
  Company Number: US-KERYX BIOPHARMACEUTICALS INC.-2020US006932

PATIENT
  Age: 48 Year
  Sex: Male
  Weight: 60 kg

DRUGS (22)
  1. PANTOPRAZOLE [Concomitant]
     Active Substance: PANTOPRAZOLE
     Dosage: 40 MILLIGRAM, QD
     Route: 048
     Dates: start: 20181001
  2. AURYXIA [Suspect]
     Active Substance: TETRAFERRIC TRICITRATE DECAHYDRATE
     Indication: HYPERPHOSPHATAEMIA
     Dosage: 2 GRAM (TABLETS) WITH MEALS AND 1 GRAM (TABLET) WITH SNACKS
     Route: 048
  3. LYRICA [Concomitant]
     Active Substance: PREGABALIN
     Dosage: 75 MILLIGRAM, ONE CAPSULE QAM AND 2 CAPSULES QPM
     Route: 048
     Dates: start: 20181221
  4. AURYXIA [Suspect]
     Active Substance: TETRAFERRIC TRICITRATE DECAHYDRATE
     Indication: IRON DEFICIENCY ANAEMIA
     Dosage: 1 GRAM
     Route: 048
  5. EPOGEN [Concomitant]
     Active Substance: ERYTHROPOIETIN
     Dosage: 4000 INTERNATIONAL UNIT EVERY 2ND AND 4TH WEEK
     Route: 058
     Dates: start: 20200612, end: 20200629
  6. DICLOXACILLIN SODIUM. [Concomitant]
     Active Substance: DICLOXACILLIN SODIUM
     Dosage: 500 MILLIGRAM, BID
     Route: 048
     Dates: start: 20181002
  7. EPOGEN [Concomitant]
     Active Substance: ERYTHROPOIETIN
     Dosage: 10000 INTERNATIONAL UNIT, QWK, PRIOR TO STARTING AURYXIA
     Route: 058
     Dates: start: 20200320, end: 20200408
  8. LEVOTHYROXINE SODIUM. [Concomitant]
     Active Substance: LEVOTHYROXINE SODIUM
     Dosage: 150 MICROGRAM, QOD
     Route: 048
     Dates: start: 20181002
  9. LEVOTHYROXINE SODIUM. [Concomitant]
     Active Substance: LEVOTHYROXINE SODIUM
     Dosage: 175 MICROGRAM, QOD
     Route: 048
     Dates: start: 20180423
  10. LISINOPRIL. [Concomitant]
     Active Substance: LISINOPRIL
     Dosage: 40 MILLIGRAM, QD WITH MID DAY MEAL
     Route: 048
     Dates: start: 20200427
  11. NOVOLOG [Concomitant]
     Active Substance: INSULIN ASPART
     Dosage: 1-3 INTERNATIONAL UNIT BEFORE MEALS DEPENDING ON CARB COUNT
     Route: 058
     Dates: start: 20181220
  12. RENVELA [Concomitant]
     Active Substance: SEVELAMER CARBONATE
     Dosage: 2.4 GRAM, 1 PACKET WITH MEALS AND 1 WITH SNACKS
     Route: 048
     Dates: start: 20200812
  13. RENAL VITE PLUS [Concomitant]
     Dosage: 0.8 MILLIGRAM, QD
     Route: 048
     Dates: start: 20190731
  14. GENTAMICIN SULFAT [Concomitant]
     Dosage: 0.1 PERCENT, APPLY DAILY TO CATHETER EXIT SITE
     Route: 061
     Dates: start: 20181218
  15. ATORVASTATIN [Concomitant]
     Active Substance: ATORVASTATIN
     Dosage: 40 MILLIGRAM, QHS
     Route: 048
     Dates: start: 20180403
  16. BABY ASPIRIN [Concomitant]
     Active Substance: ASPIRIN
     Dosage: 81 MILLIGRAM, QD
     Route: 048
     Dates: start: 20190904
  17. VENOFER [Concomitant]
     Active Substance: IRON SUCROSE
     Dosage: 100 MILLIGRAM, QMO
     Route: 040
     Dates: start: 20191209, end: 20191213
  18. VENOFER [Concomitant]
     Active Substance: IRON SUCROSE
     Dosage: 200 MILLIGRAM, QMO
     Route: 040
     Dates: start: 20191213, end: 20200110
  19. EPOGEN [Concomitant]
     Active Substance: ERYTHROPOIETIN
     Dosage: 24000 INTERNATIONAL UNIT, QWK
     Route: 058
     Dates: start: 20200210, end: 20200320
  20. EPOGEN [Concomitant]
     Active Substance: ERYTHROPOIETIN
     Dosage: 12000 INTERNATIONAL UNIT, QWK
     Route: 058
     Dates: start: 20200629
  21. VENOFER [Concomitant]
     Active Substance: IRON SUCROSE
     Dosage: 200 MILLIGRAM
     Route: 040
     Dates: start: 20200203, end: 20200325
  22. VENOFER [Concomitant]
     Active Substance: IRON SUCROSE
     Dosage: 200 MILLIGRAM, 3 TIMES/WK
     Route: 040
     Dates: start: 20190731, end: 20190731

REACTIONS (2)
  - Transferrin saturation increased [Recovered/Resolved]
  - Serum ferritin increased [Recovered/Resolved]

NARRATIVE: CASE EVENT DATE: 20200405
